FAERS Safety Report 7503330-X (Version None)
Quarter: 2011Q2

REPORT INFORMATION
  Report Type: 
  Country: None (occurrence: None)
  Receive Date: 20110525
  Receipt Date: 20110511
  Transmission Date: 20111010
  Serious: No
  Sender: FDA-Public Use
  Company Number: DE-ASTRAZENECA-2011SE13621

PATIENT
  Age: 5447 Day
  Sex: Male
  Weight: 57 kg

DRUGS (15)
  1. SEROQUEL XR [Suspect]
     Route: 048
     Dates: start: 20101221, end: 20101223
  2. SEROQUEL XR [Suspect]
     Route: 048
     Dates: start: 20101229, end: 20110221
  3. SEROQUEL XR [Suspect]
     Route: 048
     Dates: start: 20101221, end: 20101223
  4. SEROQUEL XR [Suspect]
     Route: 048
     Dates: start: 20101224, end: 20101228
  5. SEROQUEL XR [Suspect]
     Route: 048
     Dates: start: 20101215, end: 20101220
  6. SEROQUEL XR [Suspect]
     Route: 048
     Dates: start: 20101229, end: 20110221
  7. SEROQUEL XR [Suspect]
     Route: 048
     Dates: start: 20101229, end: 20110221
  8. SEROQUEL XR [Suspect]
     Indication: SCHIZOPHRENIA
     Route: 048
     Dates: start: 20101208, end: 20101214
  9. SEROQUEL XR [Suspect]
     Route: 048
     Dates: start: 20101221, end: 20101223
  10. SEROQUEL XR [Suspect]
     Route: 048
     Dates: start: 20101224, end: 20101228
  11. SEROQUEL XR [Suspect]
     Indication: SCHIZOPHRENIA, DISORGANISED TYPE
     Route: 048
     Dates: start: 20101208, end: 20101214
  12. SEROQUEL XR [Suspect]
     Route: 048
     Dates: start: 20101215, end: 20101220
  13. SEROQUEL XR [Suspect]
     Indication: MAJOR DEPRESSION
     Route: 048
     Dates: start: 20101208, end: 20101214
  14. SEROQUEL XR [Suspect]
     Route: 048
     Dates: start: 20101215, end: 20101220
  15. SEROQUEL XR [Suspect]
     Route: 048
     Dates: start: 20101224, end: 20101228

REACTIONS (1)
  - LEUKOPENIA [None]
